FAERS Safety Report 7077390-7 (Version None)
Quarter: 2010Q4

REPORT INFORMATION
  Report Type: 
  Country: None (occurrence: None)
  Receive Date: 20101101
  Receipt Date: 20101021
  Transmission Date: 20110411
  Serious: Yes (Life-Threatening, Hospitalization)
  Sender: FDA-Public Use
  Company Number: JP-MERCK-1010USA02982

PATIENT
  Age: 80 Year
  Sex: Male

DRUGS (9)
  1. JANUVIA [Suspect]
     Indication: TYPE 2 DIABETES MELLITUS
     Route: 048
     Dates: start: 20100630, end: 20100719
  2. JANUVIA [Suspect]
     Route: 048
     Dates: start: 20100723, end: 20100726
  3. VALSARTAN [Suspect]
     Indication: HYPERTENSION
     Route: 048
     Dates: start: 20100630, end: 20100719
  4. GLICLAZIDE [Concomitant]
     Indication: TYPE 2 DIABETES MELLITUS
     Route: 065
     Dates: start: 20100630
  5. SELEGILINE HYDROCHLORIDE [Concomitant]
     Route: 065
     Dates: start: 20100218, end: 20100625
  6. SELEGILINE HYDROCHLORIDE [Concomitant]
     Route: 065
     Dates: start: 20100626
  7. LEVODOPA [Concomitant]
     Route: 065
     Dates: start: 20091229
  8. DOMPERIDONE [Concomitant]
     Route: 065
     Dates: start: 20091229, end: 20100719
  9. ENTACAPONE [Concomitant]
     Route: 065
     Dates: start: 20100713, end: 20100717

REACTIONS (1)
  - ENTEROCOLITIS HAEMORRHAGIC [None]
